FAERS Safety Report 14064157 (Version 2)
Quarter: 2017Q4

REPORT INFORMATION
  Report Type: Report from Study
  Country: BR (occurrence: BR)
  Receive Date: 20171009
  Receipt Date: 20171103
  Transmission Date: 20180321
  Serious: Yes (Other)
  Sender: FDA-Public Use
  Company Number: PHHY2017BR144839

PATIENT
  Sex: Female
  Weight: 46 kg

DRUGS (4)
  1. FOLIC ACID. [Concomitant]
     Active Substance: FOLIC ACID
     Indication: ANAEMIA
     Dosage: 1 TABLET PER DAY (STARTED SINCE 23 YEARS OLD)
     Route: 048
  2. EXJADE [Suspect]
     Active Substance: DEFERASIROX
     Indication: SICKLE CELL ANAEMIA
     Dosage: 500 MG, 2 TABLETS PER DAY
     Route: 048
     Dates: start: 2014
  3. HYDREA [Concomitant]
     Active Substance: HYDROXYUREA
     Indication: ANAEMIA
     Dosage: USED FO R7 YEARS
     Route: 048
  4. FOLIC ACID. [Concomitant]
     Active Substance: FOLIC ACID
     Indication: CEREBROVASCULAR ACCIDENT

REACTIONS (3)
  - Osteoarthritis [Not Recovered/Not Resolved]
  - Pain [Unknown]
  - Osteomyelitis [Unknown]
